FAERS Safety Report 7104595-9 (Version None)
Quarter: 2010Q4

REPORT INFORMATION
  Report Type: 
  Country: None (occurrence: None)
  Receive Date: 20101108
  Receipt Date: 20100908
  Transmission Date: 20110411
  Serious: Yes (Death)
  Sender: FDA-Public Use
  Company Number: 005820

PATIENT
  Age: 10 Year
  Sex: Male

DRUGS (1)
  1. LACOSAMIDE [Suspect]

REACTIONS (3)
  - DIARRHOEA [None]
  - SEPSIS [None]
  - VOMITING [None]
